FAERS Safety Report 7072105-0 (Version None)
Quarter: 2010Q4

REPORT INFORMATION
  Report Type: 
  Country: None (occurrence: None)
  Receive Date: 20101028
  Receipt Date: 20101028
  Transmission Date: 20110411
  Serious: No
  Sender: FDA-Public Use
  Company Number: None

PATIENT
  Sex: Male
  Weight: 9.0719 kg

DRUGS (1)
  1. TEETHING TABLETS HYLAND'S [Suspect]
     Indication: TEETHING
     Dosage: 3 TABLETS 2 TIMES A DAY PO
     Route: 048
     Dates: start: 20100810, end: 20101025

REACTIONS (2)
  - FLUSHING [None]
  - IRRITABILITY [None]
